FAERS Safety Report 5669080-X (Version None)
Quarter: 2008Q1

REPORT INFORMATION
  Report Type: 
  Country: None (occurrence: None)
  Receive Date: 20080313
  Receipt Date: 20080313
  Transmission Date: 20080703
  Serious: Yes (Other)
  Sender: FDA-Public Use
  Company Number: None

PATIENT
  Age: 77 Year
  Sex: Female
  Weight: 62.5964 kg

DRUGS (2)
  1. VERAPAMIL [Suspect]
     Indication: DIZZINESS
     Dosage: ONE TABLET DAILY PO  2 I/2 WEEKS
     Route: 048
     Dates: start: 20080118, end: 20080201
  2. VERAPAMIL [Suspect]
     Indication: MIGRAINE
     Dosage: ONE TABLET DAILY PO  2 I/2 WEEKS
     Route: 048
     Dates: start: 20080118, end: 20080201

REACTIONS (1)
  - STOMATITIS [None]
